FAERS Safety Report 9652178 (Version 1)
Quarter: 2013Q4

REPORT INFORMATION
  Report Type: Report from Study
  Country: LB (occurrence: LB)
  Receive Date: 20131029
  Receipt Date: 20131029
  Transmission Date: 20140711
  Serious: Yes (Hospitalization)
  Sender: FDA-Public Use
  Company Number: LB-SA-2013SA108708

PATIENT
  Age: 60 Year
  Sex: Female

DRUGS (4)
  1. LANTUS SOLOSTAR [Suspect]
     Indication: DIABETES MELLITUS
     Dosage: DOSE:20 UNIT(S)
     Route: 058
  2. SOLOSTAR [Concomitant]
  3. APIDRA [Concomitant]
     Indication: DIABETES MELLITUS
     Route: 058
  4. EUTHYROX [Concomitant]
     Route: 048

REACTIONS (1)
  - Wound infection [Recovered/Resolved]
